FAERS Safety Report 6222378-9 (Version None)
Quarter: 2009Q2

REPORT INFORMATION
  Report Type: 
  Country: None (occurrence: None)
  Receive Date: 20090608
  Receipt Date: 20090522
  Transmission Date: 20091009
  Serious: Yes (Hospitalization)
  Sender: FDA-Public Use
  Company Number: JP-GENENTECH-278313

PATIENT
  Sex: Male

DRUGS (12)
  1. AVASTIN [Suspect]
     Indication: COLON CANCER METASTATIC
     Dosage: 5 MG/KG, Q2W
     Route: 041
     Dates: start: 20081120
  2. LEVOLEUCOVORIN CALCIUM [Concomitant]
     Indication: METASTASES TO PERITONEUM
     Dosage: UNK
     Dates: start: 20081120, end: 20090205
  3. IRINOTECAN HCL [Concomitant]
     Indication: METASTASES TO PERITONEUM
     Dosage: UNK
     Dates: start: 20081120, end: 20090205
  4. FLUOROURACIL [Concomitant]
     Indication: METASTASES TO PERITONEUM
     Dosage: UNK
     Dates: start: 20081120, end: 20090206
  5. KYTRIL [Concomitant]
     Indication: DRUG USE FOR UNKNOWN INDICATION
     Dosage: UNK
     Dates: start: 20081120, end: 20090205
  6. DECADRON [Concomitant]
     Indication: DRUG USE FOR UNKNOWN INDICATION
     Dosage: UNK
     Dates: start: 20081120, end: 20090205
  7. HANGE-SHASHIN-TO [Concomitant]
     Indication: DRUG USE FOR UNKNOWN INDICATION
     Dosage: UNK
     Dates: start: 20081117, end: 20090205
  8. PRIMPERAN TAB [Concomitant]
     Indication: DRUG USE FOR UNKNOWN INDICATION
     Dosage: UNK
     Dates: start: 20081120, end: 20090205
  9. SODIUM BICARBONATE [Concomitant]
     Indication: DRUG USE FOR UNKNOWN INDICATION
     Dosage: UNK
     Dates: start: 20081120, end: 20090205
  10. MAGNESIUM OXIDE [Concomitant]
     Indication: DRUG USE FOR UNKNOWN INDICATION
     Dosage: UNK
     Dates: start: 20081120, end: 20090205
  11. URSODIOL [Concomitant]
     Indication: DRUG USE FOR UNKNOWN INDICATION
     Dosage: UNK
     Dates: start: 20081120, end: 20090205
  12. PURSENNID [Concomitant]
     Indication: DRUG USE FOR UNKNOWN INDICATION
     Dosage: UNK
     Dates: start: 20081120, end: 20090205

REACTIONS (2)
  - HYPERTENSION [None]
  - PANCREATITIS ACUTE [None]
